FAERS Safety Report 16776148 (Version 1)
Quarter: 2019Q3

REPORT INFORMATION
  Report Type: Spontaneous
  Country: US (occurrence: US)
  Receive Date: 20190716
  Receipt Date: 20190716
  Transmission Date: 20191005
  Serious: Yes (Death)
  Sender: FDA-Public Use
  Company Number: None

PATIENT
  Age: 92 Year
  Sex: Male
  Weight: 61.23 kg

DRUGS (13)
  1. VITAMIN D3 + B12 [Concomitant]
  2. FLUTICASONE. [Concomitant]
     Active Substance: FLUTICASONE
  3. ZYTIGA [Suspect]
     Active Substance: ABIRATERONE ACETATE
     Indication: PROSTATE CANCER
     Route: 048
  4. XTANDI [Concomitant]
     Active Substance: ENZALUTAMIDE
  5. TRAMADOL. [Concomitant]
     Active Substance: TRAMADOL
  6. KEPPRA [Concomitant]
     Active Substance: LEVETIRACETAM
  7. SYMBICORT [Concomitant]
     Active Substance: BUDESONIDE\FORMOTEROL FUMARATE DIHYDRATE
  8. GABAPENTIN. [Concomitant]
     Active Substance: GABAPENTIN
  9. ROPINIROLE. [Concomitant]
     Active Substance: ROPINIROLE
  10. XGEVA [Concomitant]
     Active Substance: DENOSUMAB
  11. AZOPT [Concomitant]
     Active Substance: BRINZOLAMIDE
  12. LUPRON [Concomitant]
     Active Substance: LEUPROLIDE ACETATE
  13. PHENOBARBITAL. [Concomitant]
     Active Substance: PHENOBARBITAL

REACTIONS (2)
  - Bone pain [None]
  - Myalgia [None]

NARRATIVE: CASE EVENT DATE: 20190714
